FAERS Safety Report 6567197-9 (Version None)
Quarter: 2010Q1

REPORT INFORMATION
  Report Type: 
  Country: None (occurrence: None)
  Receive Date: 20100128
  Receipt Date: 20100113
  Transmission Date: 20100710
  Serious: Yes (Hospitalization)
  Sender: FDA-Public Use
  Company Number: 2009AC000015

PATIENT
  Age: 57 Year
  Sex: Male

DRUGS (21)
  1. DIGOXIN [Suspect]
     Dosage: PO
     Route: 048
     Dates: start: 20060101
  2. DIGOXIN [Suspect]
     Dosage: 250 MCG;PO
     Route: 048
     Dates: start: 20070227
  3. DIGOXIN [Suspect]
     Dates: start: 20040101
  4. COUMADIN [Concomitant]
  5. CRESTOR [Concomitant]
  6. LOVENOX [Concomitant]
  7. BETAPACE [Concomitant]
  8. ZITHROMAX [Concomitant]
  9. LEVAQUIN [Concomitant]
  10. ALBUTEROL [Concomitant]
  11. COMBIVENT [Concomitant]
  12. VITAMIN K TAB [Concomitant]
  13. PREDNISONE [Concomitant]
  14. DOXYCYCLINE [Concomitant]
  15. DIFLUCAN [Concomitant]
  16. VERAPAMIL [Concomitant]
  17. CEPHALEXIN [Concomitant]
  18. HYDROCODONE [Concomitant]
  19. ASPIRIN [Concomitant]
  20. VIAGRA [Concomitant]
  21. ZYRTEC [Concomitant]

REACTIONS (7)
  - ATRIAL FIBRILLATION [None]
  - BRONCHITIS [None]
  - BRONCHOSPASM [None]
  - ECONOMIC PROBLEM [None]
  - MULTIPLE INJURIES [None]
  - PNEUMONITIS [None]
  - POST PROCEDURAL COMPLICATION [None]
